FAERS Safety Report 11416668 (Version 2)
Quarter: 2016Q1

REPORT INFORMATION
  Report Type: Spontaneous
  Country: US (occurrence: US)
  Receive Date: 20150825
  Receipt Date: 20160104
  Transmission Date: 20160525
  Serious: Yes (Other)
  Sender: FDA-Public Use
  Company Number: US-BAYER-2015-405372

PATIENT
  Age: 35 Year
  Sex: Female
  Weight: 56.24 kg

DRUGS (2)
  1. OMEGA 3 [Concomitant]
     Active Substance: OMEGA-3 FATTY ACIDS
  2. MIRENA [Suspect]
     Active Substance: LEVONORGESTREL
     Indication: CONTRACEPTION
     Dosage: 20 MCG/24HR, CONT
     Route: 015
     Dates: start: 20100716, end: 20150929

REACTIONS (6)
  - Embedded device [Not Recovered/Not Resolved]
  - Device difficult to use [Not Recovered/Not Resolved]
  - Vulvovaginal dryness [None]
  - Dyspareunia [None]
  - Pelvic pain [None]
  - Amenorrhoea [None]

NARRATIVE: CASE EVENT DATE: 20150731
